FAERS Safety Report 7724688 (Version 2)
Quarter: 2013Q3

REPORT INFORMATION
  Report Type: Spontaneous
  Country: US (occurrence: US)
  Receive Date: 20101221
  Receipt Date: 20130718
  Transmission Date: 20140515
  Serious: Yes (Hospitalization, Other)
  Sender: FDA-Public Use
  Company Number: PHHY2010US85103

PATIENT
  Age: 20 Year
  Sex: Male

DRUGS (4)
  1. VANCOMYCIN [Suspect]
     Indication: TENOSYNOVITIS
  2. CEFTRIAXONE [Suspect]
  3. DOXYCYCLINE [Suspect]
  4. CO-TRIMOXAZOLE [Suspect]

REACTIONS (24)
  - Stevens-Johnson syndrome [Recovering/Resolving]
  - Drug reaction with eosinophilia and systemic symptoms [Recovering/Resolving]
  - Pyrexia [Recovering/Resolving]
  - Face oedema [Recovering/Resolving]
  - Generalised oedema [Recovering/Resolving]
  - Myalgia [Recovering/Resolving]
  - Skin exfoliation [Recovering/Resolving]
  - Rash [Recovering/Resolving]
  - Transaminases increased [Recovering/Resolving]
  - Swelling [Recovering/Resolving]
  - White blood cell count increased [Recovering/Resolving]
  - Lymphocyte count decreased [Recovering/Resolving]
  - Eosinophil count increased [Recovering/Resolving]
  - Septic shock [Unknown]
  - Renal failure [Unknown]
  - Respiratory failure [Unknown]
  - Disseminated intravascular coagulation [Recovering/Resolving]
  - Lymphadenopathy [Recovering/Resolving]
  - Splenic infarction [Unknown]
  - Upper respiratory tract infection [Unknown]
  - Drug eruption [Recovering/Resolving]
  - Lichenoid keratosis [Recovering/Resolving]
  - Dermatitis exfoliative [Recovering/Resolving]
  - Human herpesvirus 6 infection [Recovering/Resolving]
